FAERS Safety Report 7407210-X (Version None)
Quarter: 2011Q2

REPORT INFORMATION
  Report Type: 
  Country: None (occurrence: None)
  Receive Date: 20110411
  Receipt Date: 20110329
  Transmission Date: 20111010
  Serious: Yes (Disabling)
  Sender: FDA-Public Use
  Company Number: PHHY2011IT26175

PATIENT
  Age: 70 Year
  Sex: Female

DRUGS (2)
  1. ZOMETA [Suspect]
     Indication: METASTASES TO BONE
     Dosage: 4 MG, QMO
     Route: 042
     Dates: start: 20060301
  2. PAMIDRONATE DISODIUM [Suspect]
     Indication: METASTASES TO BONE
     Dosage: 60 MG, QMO
     Route: 042

REACTIONS (2)
  - BONE DISORDER [None]
  - OSTEONECROSIS OF JAW [None]
